FAERS Safety Report 10133443 (Version 2)
Quarter: 2014Q2

REPORT INFORMATION
  Report Type: Spontaneous
  Country: US (occurrence: US)
  Receive Date: 20140428
  Receipt Date: 20140602
  Transmission Date: 20141212
  Serious: No
  Sender: FDA-Public Use
  Company Number: US-009507513-1404USA002441

PATIENT
  Sex: Male
  Weight: 104.31 kg

DRUGS (1)
  1. MIRALAX [Suspect]
     Indication: CONSTIPATION
     Dosage: 17 G, PRN
     Route: 048
     Dates: start: 201308, end: 201404

REACTIONS (2)
  - Inappropriate schedule of drug administration [Unknown]
  - Product quality issue [Unknown]
